FAERS Safety Report 5087984-6 (Version None)
Quarter: 2006Q3

REPORT INFORMATION
  Report Type: 
  Country: None (occurrence: None)
  Receive Date: 20060824
  Receipt Date: 20060814
  Transmission Date: 20061208
  Serious: Yes (Death, Hospitalization, Other)
  Sender: FDA-Public Use
  Company Number: PL-BRISTOL-MYERS SQUIBB COMPANY-13473756

PATIENT
  Age: 44 Year
  Sex: Male

DRUGS (2)
  1. DASATINIB [Suspect]
     Indication: CHRONIC MYELOID LEUKAEMIA
     Dosage: 140MG 20DEC TO 14AUG06 180MG 15AUG TO 18AUG06
     Route: 048
     Dates: start: 20051220, end: 20060818
  2. HUMULIN M3 [Concomitant]
     Dates: start: 20010101

REACTIONS (4)
  - CEREBRAL HAEMORRHAGE [None]
  - CEREBRAL ISCHAEMIA [None]
  - CHRONIC MYELOID LEUKAEMIA [None]
  - THROMBOCYTOPENIA [None]
